FAERS Safety Report 9585406 (Version 1)
Quarter: 2013Q4

REPORT INFORMATION
  Report Type: Spontaneous
  Country: US (occurrence: US)
  Receive Date: 20131002
  Receipt Date: 20131002
  Transmission Date: 20140711
  Serious: No
  Sender: FDA-Public Use
  Company Number: US-AMGEN-USASP2013064267

PATIENT
  Age: 50 Year
  Sex: Female

DRUGS (6)
  1. ENBREL [Suspect]
     Indication: PRODUCT USED FOR UNKNOWN INDICATION
     Dosage: 50 MG, QWK
     Route: 058
  2. NARATRIPTAN [Concomitant]
     Dosage: 1 MG, UNK
  3. LEVOTHYROXIN [Concomitant]
     Dosage: 25 MUG, UNK
  4. MULTIVITAMINS, PLAIN [Concomitant]
     Dosage: UNK
  5. ATORVASTATIN [Concomitant]
     Dosage: 10 MG, UNK
  6. CALCIUM [Concomitant]
     Dosage: 500 MG, UNK

REACTIONS (1)
  - Injection site bruising [Unknown]
